FAERS Safety Report 17256696 (Version 1)
Quarter: 2020Q1

REPORT INFORMATION
  Report Type: Spontaneous
  Country: US (occurrence: US)
  Receive Date: 20200109
  Receipt Date: 20200109
  Transmission Date: 20200409
  Serious: No
  Sender: FDA-Public Use
  Company Number: None

PATIENT
  Age: 28 Year
  Sex: Female

DRUGS (1)
  1. REXALL SINUS NASAL PUMP MIST [Suspect]
     Active Substance: OXYMETAZOLINE HYDROCHLORIDE
     Indication: NASOPHARYNGITIS
     Route: 055
     Dates: start: 20200108, end: 20200108

REACTIONS (6)
  - Pain [None]
  - Burning sensation [None]
  - Headache [None]
  - Dyspnoea [None]
  - Hot flush [None]
  - Palpitations [None]

NARRATIVE: CASE EVENT DATE: 20200108
